FAERS Safety Report 8273553-3 (Version None)
Quarter: 2012Q2

REPORT INFORMATION
  Report Type: 
  Country: None (occurrence: None)
  Receive Date: 20120409
  Receipt Date: 20120409
  Transmission Date: 20120825
  Serious: Yes (Life-Threatening, Hospitalization)
  Sender: FDA-Public Use
  Company Number: None

PATIENT
  Age: 95 Year
  Sex: Male
  Weight: 88.4 kg

DRUGS (2)
  1. WARFARIN SODIUM [Suspect]
     Indication: DEEP VEIN THROMBOSIS
     Dosage: 2 MG AT BEDTIME PO
     Route: 048
     Dates: start: 20110625, end: 20110705
  2. WARFARIN SODIUM [Suspect]
     Indication: PULMONARY EMBOLISM
     Dosage: 2 MG AT BEDTIME PO
     Route: 048
     Dates: start: 20110625, end: 20110705

REACTIONS (9)
  - HAEMORRHAGE [None]
  - GASTROINTESTINAL HAEMORRHAGE [None]
  - LETHARGY [None]
  - DIARRHOEA [None]
  - INTERNATIONAL NORMALISED RATIO INCREASED [None]
  - CLOSTRIDIUM DIFFICILE COLITIS [None]
  - RETROPERITONEAL HAEMORRHAGE [None]
  - HYPOPHAGIA [None]
  - DRUG INTERACTION [None]
